FAERS Safety Report 7419142-1 (Version None)
Quarter: 2011Q2

REPORT INFORMATION
  Report Type: 
  Country: None (occurrence: None)
  Receive Date: 20110415
  Receipt Date: 20110404
  Transmission Date: 20111010
  Serious: No
  Sender: FDA-Public Use
  Company Number: B0711953A

PATIENT

DRUGS (1)
  1. RELENZA [Suspect]
     Indication: PRODUCT USED FOR UNKNOWN INDICATION
     Route: 055

REACTIONS (2)
  - WRONG TECHNIQUE IN DRUG USAGE PROCESS [None]
  - NO ADVERSE EVENT [None]
